FAERS Safety Report 8925178 (Version 1)
Quarter: 2012Q4

REPORT INFORMATION
  Report Type: 
  Country: ES (occurrence: ES)
  Receive Date: 20121126
  Receipt Date: 20121126
  Transmission Date: 20130627
  Serious: Yes (Other)
  Sender: FDA-Public Use
  Company Number: ES-ROCHE-1157366

PATIENT
  Age: 70 Year
  Sex: Male
  Weight: 70 kg

DRUGS (3)
  1. RITUXIMAB [Suspect]
     Indication: NON-HODGKIN^S LYMPHOMA
     Route: 042
     Dates: start: 20121001, end: 20121008
  2. RITUXIMAB [Suspect]
     Indication: NON-HODGKIN^S LYMPHOMA
     Route: 042
     Dates: start: 20121115, end: 20121115
  3. BENDAMUSTINE [Concomitant]
     Indication: LYMPHOMA
     Route: 042
     Dates: start: 20111115

REACTIONS (4)
  - Skin toxicity [Recovered/Resolved]
  - Toxicity to various agents [Unknown]
  - Discomfort [Recovered/Resolved]
  - Pruritus [Unknown]
